FAERS Safety Report 7436605-3 (Version None)
Quarter: 2011Q2

REPORT INFORMATION
  Report Type: 
  Country: None (occurrence: None)
  Receive Date: 20110426
  Receipt Date: 20110411
  Transmission Date: 20111010
  Serious: Yes (Other)
  Sender: FDA-Public Use
  Company Number: US-SHIRE-SPV1-2011-00603

PATIENT
  Sex: Female
  Weight: 66.213 kg

DRUGS (4)
  1. VITAMIN A [Concomitant]
     Indication: PRODUCT USED FOR UNKNOWN INDICATION
     Dosage: UNK, UNKNOWN
     Route: 048
  2. PAPAYA ENZYME                      /00389401/ [Concomitant]
     Indication: GASTROOESOPHAGEAL REFLUX DISEASE
     Dosage: UNK, UNKNOWN
     Route: 048
  3. RANIDINE                           /00550801/ [Concomitant]
     Indication: GASTROOESOPHAGEAL REFLUX DISEASE
     Dosage: UNK, UNKNOWN
     Route: 048
  4. PENTASA [Suspect]
     Indication: COLITIS ULCERATIVE
     Dosage: 500 MG, OTHER: SIX 500MG CAPSULES WITH A TOTAL DAILY DOSE OF 3,000MG)
     Route: 048
     Dates: start: 20060101

REACTIONS (4)
  - POLLAKIURIA [None]
  - UPPER RESPIRATORY TRACT INFECTION [None]
  - AMNESIA [None]
  - ROAD TRAFFIC ACCIDENT [None]
